FAERS Safety Report 9239784 (Version 1)
Quarter: 2013Q2

REPORT INFORMATION
  Report Type: Spontaneous
  Country: US (occurrence: US)
  Receive Date: 20130418
  Receipt Date: 20130418
  Transmission Date: 20140414
  Serious: Yes (Other)
  Sender: FDA-Public Use
  Company Number: US-PFIZER INC-2013120403

PATIENT
  Age: 56 Year
  Sex: Male
  Weight: 72.56 kg

DRUGS (1)
  1. CELEBREX [Suspect]
     Indication: ARTHRALGIA
     Dosage: 200 MG, AS NEEDED

REACTIONS (4)
  - Rib fracture [Unknown]
  - Musculoskeletal chest pain [Unknown]
  - Blood cholesterol increased [Unknown]
  - Inappropriate schedule of drug administration [Unknown]
